FAERS Safety Report 7861672-2 (Version None)
Quarter: 2011Q4

REPORT INFORMATION
  Report Type: 
  Country: None (occurrence: None)
  Receive Date: 20111027
  Receipt Date: 20111019
  Transmission Date: 20120403
  Serious: Yes (Hospitalization)
  Sender: FDA-Public Use
  Company Number: US-US-EMD SERONO, INC.-7002954

PATIENT
  Sex: Female
  Weight: 61 kg

DRUGS (4)
  1. BLOOD PRESSURE MEDICATION [Concomitant]
     Indication: HYPERTENSION
  2. THYROID MEDICATION [Concomitant]
     Indication: HYPOTHYROIDISM
  3. ESTROGENIC SUBSTANCE [Concomitant]
  4. REBIF [Suspect]
     Indication: MULTIPLE SCLEROSIS
     Route: 058
     Dates: start: 20091027, end: 20101101

REACTIONS (4)
  - DIZZINESS [None]
  - FALL [None]
  - HIP FRACTURE [None]
  - UPPER LIMB FRACTURE [None]
